FAERS Safety Report 17839384 (Version 4)
Quarter: 2020Q3

REPORT INFORMATION
  Report Type: Spontaneous
  Country: AT (occurrence: AT)
  Receive Date: 20200529
  Receipt Date: 20200923
  Transmission Date: 20201103
  Serious: Yes (Other)
  Sender: FDA-Public Use
  Company Number: AT-BAXTER-2020BAX011134

PATIENT
  Age: 63 Year
  Sex: Female
  Weight: 58 kg

DRUGS (10)
  1. DOXIL [Suspect]
     Active Substance: DOXORUBICIN HYDROCHLORIDE
     Indication: T-CELL LYMPHOMA
  2. ENDOXAN ANDQUOT;BAXTERANDQUOT; 1G TROCKENSTECHAMPULLE [Suspect]
     Active Substance: CYCLOPHOSPHAMIDE
     Indication: ANAPLASTIC LARGE CELL LYMPHOMA T- AND NULL-CELL TYPES
     Dosage: 6 CYCLES ADMINISTERED TOTAL; CHP REGIMEN; CYCLICAL
     Route: 065
     Dates: start: 201909
  3. VINCRISTINE [Suspect]
     Active Substance: VINCRISTINE
     Indication: ANAPLASTIC LARGE-CELL LYMPHOMA
     Route: 065
  4. G?CSF [Concomitant]
     Active Substance: GRANULOCYTE COLONY-STIMULATING FACTOR NOS
     Indication: PROPHYLAXIS
     Route: 065
  5. ADCETRIS [Suspect]
     Active Substance: BRENTUXIMAB VEDOTIN
     Indication: ANAPLASTIC LARGE CELL LYMPHOMA T- AND NULL-CELL TYPES
     Dosage: 6 CYCLES ADMINISTERED TOTAL; CHP REGIMEN (DOSE REDUCED AFTER 2 CYCLES); CYCLICAL
     Route: 065
     Dates: start: 201909
  6. ADCETRIS [Suspect]
     Active Substance: BRENTUXIMAB VEDOTIN
     Indication: T-CELL LYMPHOMA
  7. DOXIL [Suspect]
     Active Substance: DOXORUBICIN HYDROCHLORIDE
     Indication: ANAPLASTIC LARGE CELL LYMPHOMA T- AND NULL-CELL TYPES
     Route: 065
     Dates: start: 201909
  8. ENDOXAN ANDQUOT;BAXTERANDQUOT; 1G TROCKENSTECHAMPULLE [Suspect]
     Active Substance: CYCLOPHOSPHAMIDE
     Indication: T-CELL LYMPHOMA
  9. PREDNISONE. [Suspect]
     Active Substance: PREDNISONE
     Indication: T-CELL LYMPHOMA
  10. PREDNISONE. [Suspect]
     Active Substance: PREDNISONE
     Indication: ANAPLASTIC LARGE CELL LYMPHOMA T- AND NULL-CELL TYPES
     Dosage: 6 CYCLES ADMINISTERED TOTAL; CHP REGIMEN; CYCLICAL
     Route: 065
     Dates: start: 201909

REACTIONS (5)
  - Weight decreased [Recovering/Resolving]
  - Asthenia [Unknown]
  - Nausea [Unknown]
  - Decreased appetite [Unknown]
  - Polyneuropathy [Recovering/Resolving]

NARRATIVE: CASE EVENT DATE: 201909
